FAERS Safety Report 15386672 (Version 1)
Quarter: 2018Q3

REPORT INFORMATION
  Report Type: Report from Study
  Country: US (occurrence: US)
  Receive Date: 20180914
  Receipt Date: 20180914
  Transmission Date: 20181010
  Serious: Yes (Death, Life-Threatening, Other)
  Sender: FDA-Public Use
  Company Number: US-009507513-1808USA009729

PATIENT
  Age: 61 Year
  Sex: Female
  Weight: 41.3 kg

DRUGS (18)
  1. KEYTRUDA [Suspect]
     Active Substance: PEMBROLIZUMAB
     Indication: BREAST CANCER METASTATIC
     Dosage: 200 MG EVERY 3 WEEKS
     Route: 042
     Dates: start: 20180625, end: 20180625
  2. ZOFRAN [Concomitant]
     Active Substance: ONDANSETRON HYDROCHLORIDE
     Dosage: TAKE 4 MG BY MOUTH EVERY 8 (EIGHT) HOURS AS NEEDED .
     Route: 048
  3. PERCOCET [Concomitant]
     Active Substance: ACETAMINOPHEN\OXYCODONE HYDROCHLORIDE
     Dosage: 1 TABLET, Q4H, EVERY FOUR HOURS AS NEEDED
     Route: 048
  4. EFFEXOR [Concomitant]
     Active Substance: VENLAFAXINE HYDROCHLORIDE
     Dosage: TAKE 1 TABLET (75 MG) BY MOUTH EVERY DAY
     Route: 048
  5. FLONASE [Concomitant]
     Active Substance: FLUTICASONE PROPIONATE
     Dosage: 50 MCG/ACT, USE ONE SPRAY IN EACH NOSTRIL TWICE DAILY FOR 10 DAYS
     Route: 055
  6. MEGACE ES [Concomitant]
     Active Substance: MEGESTROL ACETATE
     Dosage: STRENGTH: 625MG/5ML, TAKE 5 ML (625 MG TOTAL) BY MOUTH DAILY
     Route: 048
  7. VITAMINS (UNSPECIFIED) [Concomitant]
     Active Substance: VITAMINS
     Dosage: TAKE 1 TABLET BY MOUTH DAILY
     Route: 048
  8. K?DUR [Concomitant]
     Active Substance: POTASSIUM CHLORIDE
     Dosage: TAKE 1 TABLET (20 MEQ TOTAL) BY MOUTH DAILY.
     Route: 048
  9. XARELTO [Concomitant]
     Active Substance: RIVAROXABAN
     Dosage: TAKE ONE TABLET BY MOUTH EVERY DAY
     Route: 048
  10. UBIDECARENONE [Concomitant]
     Active Substance: UBIDECARENONE
     Dosage: 30 MG, UNK
  11. OSCAL [Concomitant]
     Active Substance: CALCIUM CARBONATE
     Dosage: 600 MG, UNK
  12. CHOLECALCIFEROL [Concomitant]
     Active Substance: CHOLECALCIFEROL
     Dosage: 5000 UNITS, TAKE BY MOUTH DAILY
     Route: 048
  13. PRILOSEC [Concomitant]
     Active Substance: OMEPRAZOLE MAGNESIUM
     Dosage: TAKE 2 CAPSULES (40 MG TOTAL) BY MOUTH DAILY
     Route: 048
  14. ALDACTONE [Concomitant]
     Active Substance: SPIRONOLACTONE
     Dosage: TAKE 1 TABLET (25 MG TOTAL) BY MOUTH 2 TIMES A DAY
     Route: 048
  15. AMBIEN [Concomitant]
     Active Substance: ZOLPIDEM TARTRATE
     Dosage: TAKE 1 TABLET (5 MG TOTAL) BY MOUTH EVERY NIGHT AT BEDTIME AS NEEDED FOR SLEEP.
     Route: 048
  16. LASIX [Concomitant]
     Active Substance: FUROSEMIDE
     Dosage: TAKE ONE TABLET (20 MG) BY MOUTH EVERY DAY
     Route: 048
  17. ATIVAN [Concomitant]
     Active Substance: LORAZEPAM
     Dosage: (2 MG/ML), TAKE 0.25 ML EVERY TWO HOURS AS NEEDED RESTLESSNESS OR ANXIETY
  18. COMPAZINE (PROCHLORPERAZINE MALEATE) [Concomitant]
     Dosage: TAKE 10 MG BY MOUTH EVERY 6 HOURS AS NEEDED
     Route: 048

REACTIONS (10)
  - Delirium [Recovered/Resolved]
  - Decreased appetite [Unknown]
  - Pleural effusion [Recovering/Resolving]
  - Anaemia [Unknown]
  - Hypokalaemia [Unknown]
  - Cerebral calcification [Unknown]
  - Haemangioma [Unknown]
  - Asthenia [Unknown]
  - Malignant neoplasm progression [Fatal]
  - Off label use [Unknown]

NARRATIVE: CASE EVENT DATE: 2018
